FAERS Safety Report 9783816 (Version 1)
Quarter: 2013Q4

REPORT INFORMATION
  Report Type: Spontaneous
  Country: US (occurrence: US)
  Receive Date: 20131226
  Receipt Date: 20131226
  Transmission Date: 20140711
  Serious: No
  Sender: FDA-Public Use
  Company Number: US-PFIZER INC-2013366021

PATIENT
  Age: 69 Year
  Sex: Female

DRUGS (5)
  1. SOMAVERT [Suspect]
     Indication: ACROMEGALY
     Dosage: 10 MG, DAILY
     Route: 058
  2. TYLENOL [Concomitant]
     Dosage: 325 MG, UNK
  3. LIPITOR [Concomitant]
     Dosage: 10 MG, UNK
  4. NORVASC [Concomitant]
     Dosage: 5 MG, UNK
  5. LISINOP/HCTZ [Concomitant]
     Dosage: LISINOPRIL 20MG/ HYDROCHLOROTHIAZIDE 25MG

REACTIONS (1)
  - Injection site pain [Unknown]
